FAERS Safety Report 5052273-2 (Version None)
Quarter: 2006Q2

REPORT INFORMATION
  Report Type: 
  Country: None (occurrence: None)
  Receive Date: 20060614
  Receipt Date: 20060223
  Transmission Date: 20061013
  Serious: Yes (Other)
  Sender: FDA-Public Use
  Company Number: 437950

PATIENT
  Sex: Female

DRUGS (4)
  1. BONIVA [Suspect]
     Indication: DRUG USE FOR UNKNOWN INDICATION
  2. NORVASC [Concomitant]
  3. AVAPRO [Concomitant]
  4. LEVOXYL [Concomitant]

REACTIONS (2)
  - NONSPECIFIC REACTION [None]
  - TOOTH DISORDER [None]
